FAERS Safety Report 6526692-9 (Version None)
Quarter: 2010Q1

REPORT INFORMATION
  Report Type: 
  Country: None (occurrence: None)
  Receive Date: 20100104
  Receipt Date: 20100104
  Transmission Date: 20100710
  Serious: No
  Sender: FDA-Public Use
  Company Number: None

PATIENT
  Sex: Female
  Weight: 153.7694 kg

DRUGS (1)
  1. THYROID TAB [Suspect]
     Indication: HYPOTHYROIDISM
     Dosage: 88MCG QD PO
     Route: 048

REACTIONS (1)
  - BLOOD THYROID STIMULATING HORMONE ABNORMAL [None]
